FAERS Safety Report 6339357-3 (Version None)
Quarter: 2009Q3

REPORT INFORMATION
  Report Type: 
  Country: None (occurrence: None)
  Receive Date: 20090903
  Receipt Date: 20090825
  Transmission Date: 20100115
  Serious: Yes (Other)
  Sender: FDA-Public Use
  Company Number: CO-ELI_LILLY_AND_COMPANY-CO200908005863

PATIENT
  Age: 65 Year
  Sex: Male

DRUGS (7)
  1. BYETTA [Suspect]
     Indication: TYPE 2 DIABETES MELLITUS
     Dosage: 5 UG, 2/D
     Route: 058
     Dates: start: 20090127
  2. BYETTA [Suspect]
     Dosage: 10 UG, 2/D
     Route: 058
     Dates: start: 20090401, end: 20090715
  3. METFORMIN HCL [Concomitant]
     Indication: BLOOD GLUCOSE
     Dosage: UNK, UNKNOWN
     Route: 048
  4. GLIMEPIRIDE [Concomitant]
     Indication: BLOOD GLUCOSE
     Dosage: UNK, UNKNOWN
     Route: 048
  5. ROSIGLITAZONE [Concomitant]
     Indication: BLOOD GLUCOSE
     Route: 048
  6. LOSARTAN [Concomitant]
     Dosage: UNK, UNKNOWN
     Route: 065
  7. ASPIRIN [Concomitant]
     Dosage: UNK, UNKNOWN
     Route: 065

REACTIONS (4)
  - DEPRESSED MOOD [None]
  - FATIGUE [None]
  - LOSS OF CONSCIOUSNESS [None]
  - URINARY TRACT INFECTION [None]
